FAERS Safety Report 11053394 (Version 1)
Quarter: 2015Q2

REPORT INFORMATION
  Report Type: Spontaneous
  Country: JP (occurrence: JP)
  Receive Date: 20150421
  Receipt Date: 20150421
  Transmission Date: 20150821
  Serious: Yes (Death)
  Sender: FDA-Public Use
  Company Number: JP-MALLINCKRODT-T201502119

PATIENT
  Age: 48 Year
  Sex: Male
  Weight: 81 kg

DRUGS (10)
  1. OXINORM [Concomitant]
     Active Substance: OXYCODONE HYDROCHLORIDE
     Dosage: 100 MG, P.R.N.
     Route: 048
     Dates: start: 20140907, end: 20140907
  2. LYRICA [Concomitant]
     Active Substance: PREGABALIN
     Dosage: 225 MG
     Route: 048
     Dates: end: 20141101
  3. CALONAL [Concomitant]
     Active Substance: ACETAMINOPHEN
     Dosage: 1600 MG
     Route: 048
     Dates: end: 20141101
  4. APONOL [Concomitant]
     Active Substance: IFENPRODIL TARTRATE
     Dosage: 60 MG
     Route: 048
     Dates: end: 20141101
  5. METHADONE [Suspect]
     Active Substance: METHADONE HYDROCHLORIDE
     Indication: CANCER PAIN
     Dosage: 10 MG, (30 MG DAILY DOSE)
     Route: 048
     Dates: start: 20140908, end: 20140928
  6. OPSO [Concomitant]
     Active Substance: MORPHINE HYDROCHLORIDE
     Dosage: 30 MG, P.R.N.
     Route: 048
     Dates: start: 20140908
  7. METHADONE [Suspect]
     Active Substance: METHADONE HYDROCHLORIDE
     Dosage: 20 MG, (40 MG DAILY DOSE)
     Route: 048
     Dates: start: 20140929, end: 20141101
  8. ETIZOLAM [Concomitant]
     Active Substance: ETIZOLAM
     Dosage: 1.5 MG
     Route: 048
     Dates: end: 20141101
  9. LOXOPROFEN [Concomitant]
     Active Substance: LOXOPROFEN
     Dosage: 180 MG
     Route: 048
     Dates: end: 20141101
  10. REMERON [Concomitant]
     Active Substance: MIRTAZAPINE
     Dosage: 7.5 MG
     Route: 048
     Dates: end: 20141101

REACTIONS (1)
  - Malignant neoplasm of unknown primary site [Fatal]
